FAERS Safety Report 4669061-9 (Version None)
Quarter: 2005Q2

REPORT INFORMATION
  Report Type: 
  Country: None (occurrence: None)
  Receive Date: 20050519
  Receipt Date: 20050509
  Transmission Date: 20051028
  Serious: Yes (Death)
  Sender: FDA-Public Use
  Company Number: 2005073857

PATIENT
  Age: 84 Year
  Sex: 0

DRUGS (6)
  1. ARTHROTEC [Suspect]
     Indication: OSTEOARTHRITIS
     Dosage: 150 MG (75 MG, 2 IN 1 D), ORAL
     Route: 048
     Dates: start: 20040311, end: 20050301
  2. RISEDRONATE (RISEDRONIC ACID) [Concomitant]
  3. CALCIUM WITH VITAMIN D [Concomitant]
  4. CO-CODAMOL (CODEINE PHOSPHATE, PARACETAMOL) [Concomitant]
  5. ASPIRIN [Concomitant]
  6. QUININE SULPHATE   (QUININE SULFATE) [Concomitant]

REACTIONS (1)
  - DEATH [None]
